FAERS Safety Report 5940633-4 (Version None)
Quarter: 2008Q4

REPORT INFORMATION
  Report Type: 
  Country: None (occurrence: None)
  Receive Date: 20081030
  Receipt Date: 20081016
  Transmission Date: 20090506
  Serious: Yes (Death, Hospitalization)
  Sender: FDA-Public Use
  Company Number: A-CH2008-22449

PATIENT
  Sex: Male

DRUGS (3)
  1. TRACLEER [Suspect]
     Indication: PULMONARY ARTERIAL HYPERTENSION
     Dosage: ORAL
     Route: 048
  2. MARCUMAR [Concomitant]
  3. INSULIN (INSULIN) [Concomitant]

REACTIONS (2)
  - METASTASES TO LUNG [None]
  - RENAL CELL CARCINOMA [None]
